FAERS Safety Report 4867949-7 (Version None)
Quarter: 2005Q4

REPORT INFORMATION
  Report Type: 
  Country: None (occurrence: None)
  Receive Date: 20051227
  Receipt Date: 20051207
  Transmission Date: 20060501
  Serious: Yes (Hospitalization)
  Sender: FDA-Public Use
  Company Number: FR-JNJFOC-20051003763

PATIENT
  Age: 52 Year
  Sex: Female

DRUGS (7)
  1. TOPIRAMATE [Suspect]
     Indication: EPILEPSY
     Dosage: ORAL
     Route: 048
     Dates: start: 20020915, end: 20050915
  2. OXACILLIN [Concomitant]
  3. MIDAZOLAM HCL [Concomitant]
  4. FENTANYL [Concomitant]
  5. TEGRETOL [Concomitant]
  6. LAMICTAL [Concomitant]
  7. ALEPSAL (ALEPSAL) [Concomitant]

REACTIONS (12)
  - ACIDOSIS [None]
  - ACUTE RESPIRATORY DISTRESS SYNDROME [None]
  - EPILEPSY [None]
  - HAEMOGLOBIN DECREASED [None]
  - PLATELET COUNT INCREASED [None]
  - RESPIRATORY ALKALOSIS [None]
  - RESPIRATORY DISORDER [None]
  - SKIN GRAFT [None]
  - SKIN GRAFT FAILURE [None]
  - STAPHYLOCOCCAL INFECTION [None]
  - SURGICAL PROCEDURE REPEATED [None]
  - THERMAL BURN [None]
